FAERS Safety Report 5263924-1 (Version None)
Quarter: 2007Q1

REPORT INFORMATION
  Report Type: 
  Country: None (occurrence: None)
  Receive Date: 20070313
  Receipt Date: 20070301
  Transmission Date: 20070707
  Serious: Yes (Hospitalization)
  Sender: FDA-Public Use
  Company Number: SG-JNJFOC-20070300262

PATIENT
  Sex: Male
  Weight: 43 kg

DRUGS (7)
  1. PREZISTA [Suspect]
     Route: 048
  2. PREZISTA [Suspect]
     Indication: HIV INFECTION
     Route: 048
  3. RITONAVIR [Suspect]
     Indication: HIV INFECTION
     Route: 048
  4. ABACAVIR [Concomitant]
     Indication: HIV INFECTION
     Route: 048
  5. LAMIVUDINE [Concomitant]
     Indication: HIV INFECTION
     Route: 048
  6. CLARITHROMYCIN [Concomitant]
     Indication: PROPHYLAXIS
     Route: 048
  7. BACTRIM [Concomitant]
     Indication: ANTIFUNGAL PROPHYLAXIS
     Route: 048

REACTIONS (1)
  - NERVOUS SYSTEM DISORDER [None]
